FAERS Safety Report 5672120-5 (Version None)
Quarter: 2008Q1

REPORT INFORMATION
  Report Type: 
  Country: None (occurrence: None)
  Receive Date: 20080317
  Receipt Date: 20080306
  Transmission Date: 20080703
  Serious: Yes (Hospitalization, Other)
  Sender: FDA-Public Use
  Company Number: 169793

PATIENT
  Age: 61 Year
  Sex: Male

DRUGS (4)
  1. AVONEX [Suspect]
     Indication: MULTIPLE SCLEROSIS
     Dosage: IM
     Route: 030
     Dates: start: 20011203
  2. NEURONTIN [Concomitant]
  3. OXYCONTIN [Concomitant]
  4. PROTONIX [Concomitant]

REACTIONS (7)
  - BREAST CANCER MALE [None]
  - CHEST INJURY [None]
  - FALL [None]
  - INFLUENZA LIKE ILLNESS [None]
  - NON-SMALL CELL LUNG CANCER [None]
  - RIB FRACTURE [None]
  - TUMOUR NECROSIS [None]
